FAERS Safety Report 7798616-8 (Version None)
Quarter: 2011Q4

REPORT INFORMATION
  Report Type: 
  Country: None (occurrence: None)
  Receive Date: 20111005
  Receipt Date: 20110920
  Transmission Date: 20120403
  Serious: Yes (Life-Threatening, Hospitalization, Disabling)
  Sender: FDA-Public Use
  Company Number: FR-GILEAD-2011-0040290

PATIENT

DRUGS (3)
  1. PREZISTA [Concomitant]
     Dates: end: 20110528
  2. TRUVADA [Suspect]
     Indication: HIV INFECTION
     Dates: start: 20080101, end: 20110528
  3. RITONAVIR [Concomitant]
     Dates: end: 20110528

REACTIONS (3)
  - RENAL TUBULAR NECROSIS [None]
  - DIALYSIS [None]
  - RENAL FAILURE ACUTE [None]
